FAERS Safety Report 13197269 (Version 1)
Quarter: 2017Q1

REPORT INFORMATION
  Report Type: Spontaneous
  Country: PL (occurrence: PL)
  Receive Date: 20170208
  Receipt Date: 20170208
  Transmission Date: 20170428
  Serious: Yes (Hospitalization, Other)
  Sender: FDA-Public Use
  Company Number: PL-PFIZER INC-2017050996

PATIENT
  Age: 53 Year

DRUGS (4)
  1. VINCRISTINE SULFATE. [Suspect]
     Active Substance: VINCRISTINE SULFATE
     Indication: CHEMOTHERAPY
     Dosage: TWO CYCLES
  2. RITUXIMAB [Suspect]
     Active Substance: RITUXIMAB
     Indication: CHEMOTHERAPY
     Dosage: TWO CYCLES
  3. CYCLOPHOSPHAMIDE. [Suspect]
     Active Substance: CYCLOPHOSPHAMIDE
     Indication: CHEMOTHERAPY
     Dosage: TWO CYCLES
  4. PREDNISONE. [Suspect]
     Active Substance: PREDNISONE
     Indication: CHEMOTHERAPY
     Dosage: TWO CYCLES

REACTIONS (6)
  - Cerebrovascular accident [Unknown]
  - Staphylococcal sepsis [Recovered/Resolved]
  - Pancytopenia [Recovered/Resolved]
  - Drug intolerance [Unknown]
  - Pneumonia [Recovered/Resolved]
  - Pyrexia [Recovering/Resolving]
